FAERS Safety Report 5811091-5 (Version None)
Quarter: 2008Q3

REPORT INFORMATION
  Report Type: 
  Country: None (occurrence: None)
  Receive Date: 20080710
  Receipt Date: 20080624
  Transmission Date: 20090109
  Serious: Yes (Hospitalization)
  Sender: FDA-Public Use
  Company Number: DSA_32086_2008

PATIENT
  Age: 44 Year
  Sex: Female

DRUGS (7)
  1. ENALAPRIL MALEATE [Suspect]
     Indication: HYPERTENSION
     Dosage: 20 MG QD ORAL
     Route: 048
  2. METRONIDAZOLE + SPIRAMYCIN [Suspect]
     Indication: ACCIDENTAL EXPOSURE
     Dosage: 250 MG/1,500,000 IU ORAL
     Route: 048
     Dates: start: 20080512, end: 20080512
  3. ACETAMINOPHEN [Concomitant]
  4. ACETYLCYSTEINE + BENZALKONIUM CHLORIDE + TUAMINOHEPTANE SULFATE [Concomitant]
  5. EUCALYPTOL + GUAIACOL + PHOLCODINE [Concomitant]
  6. PRISTINAMYCIN [Concomitant]
  7. ALCOHOL [Concomitant]

REACTIONS (7)
  - ALCOHOL USE [None]
  - ANGIOEDEMA [None]
  - BODY TEMPERATURE INCREASED [None]
  - DYSPNOEA [None]
  - ERYTHEMA [None]
  - RHONCHI [None]
  - WRONG DRUG ADMINISTERED [None]
